FAERS Safety Report 9678447 (Version 1)
Quarter: 2013Q4

REPORT INFORMATION
  Report Type: Spontaneous
  Country: US (occurrence: US)
  Receive Date: 20131108
  Receipt Date: 20131108
  Transmission Date: 20140711
  Serious: Yes (Hospitalization, Other)
  Sender: FDA-Public Use
  Company Number: US-ASTRAZENECA-2013SE80910

PATIENT
  Age: 60 Year
  Sex: Male

DRUGS (1)
  1. BRILINTA [Suspect]
     Indication: STENT PLACEMENT
     Route: 048
     Dates: start: 2013, end: 201310

REACTIONS (4)
  - Myocardial infarction [Unknown]
  - Thrombosis in device [Unknown]
  - Dyspnoea [Unknown]
  - Intentional drug misuse [Recovered/Resolved]
